FAERS Safety Report 9474209 (Version 1)
Quarter: 2013Q3

REPORT INFORMATION
  Report Type: Report from Study
  Country: US (occurrence: US)
  Receive Date: 20130823
  Receipt Date: 20130823
  Transmission Date: 20140515
  Serious: Yes (Hospitalization)
  Sender: FDA-Public Use
  Company Number: US-JNJFOC-20130809304

PATIENT
  Age: 18 Year
  Sex: Female
  Weight: 47 kg

DRUGS (4)
  1. REMICADE [Suspect]
     Indication: CROHN^S DISEASE
     Route: 042
     Dates: start: 20031209
  2. REMICADE [Suspect]
     Indication: CROHN^S DISEASE
     Route: 042
     Dates: start: 20120925, end: 201211
  3. BUDESONIDE [Concomitant]
     Route: 065
  4. TYLENOL [Concomitant]
     Route: 065

REACTIONS (1)
  - Crohn^s disease [Recovered/Resolved]
